FAERS Safety Report 12654314 (Version 1)
Quarter: 2016Q3

REPORT INFORMATION
  Report Type: Spontaneous
  Country: US (occurrence: None)
  Receive Date: 20160815
  Receipt Date: 20160815
  Transmission Date: 20161109
  Serious: Yes (Disabling, Other)
  Sender: FDA-Public Use
  Company Number: None

PATIENT
  Age: 46 Year
  Sex: Male
  Weight: 85.73 kg

DRUGS (5)
  1. DIAZAPAM (VALIUM) [Concomitant]
  2. MULTIVITAMIN [Concomitant]
     Active Substance: VITAMINS
  3. LISINOPRIL. [Concomitant]
     Active Substance: LISINOPRIL
  4. ABILIFY [Suspect]
     Active Substance: ARIPIPRAZOLE
     Indication: DEPRESSION
     Route: 048
  5. WELLBUTIN [Concomitant]

REACTIONS (5)
  - Feeling abnormal [None]
  - Tremor [None]
  - Mental disorder [None]
  - Crying [None]
  - Pyrexia [None]

NARRATIVE: CASE EVENT DATE: 20160812
